FAERS Safety Report 8490670-3 (Version None)
Quarter: 2012Q3

REPORT INFORMATION
  Report Type: 
  Country: None (occurrence: None)
  Receive Date: 20120705
  Receipt Date: 20120628
  Transmission Date: 20120928
  Serious: Yes (Death, Hospitalization, Other)
  Sender: FDA-Public Use
  Company Number: US-CELGENEUS-163-21880-12053232

PATIENT
  Sex: Female

DRUGS (10)
  1. ASPIRIN [Concomitant]
     Dosage: 81 MILLIGRAM
     Route: 065
  2. PROCRIT [Concomitant]
     Route: 065
  3. DEXAMETHASONE SODIUM PHOSPHATE [Concomitant]
     Route: 065
  4. FLUIDS [Concomitant]
     Route: 041
  5. IRON [Concomitant]
     Route: 065
  6. TRANSFUSION [Concomitant]
     Route: 041
  7. LUTEIN [Concomitant]
     Dosage: 20 MILLIGRAM
     Route: 065
  8. ZOLOFT [Concomitant]
     Route: 065
  9. REVLIMID [Suspect]
     Indication: MULTIPLE MYELOMA
     Route: 048
     Dates: start: 20120423
  10. XGEVA [Concomitant]
     Indication: ROUTINE HEALTH MAINTENANCE
     Route: 065
     Dates: start: 20110101

REACTIONS (2)
  - MULTIPLE MYELOMA [None]
  - RENAL FAILURE [None]
